FAERS Safety Report 6109983-5 (Version None)
Quarter: 2009Q1

REPORT INFORMATION
  Report Type: 
  Country: None (occurrence: None)
  Receive Date: 20090310
  Receipt Date: 20081029
  Transmission Date: 20090719
  Serious: No
  Sender: FDA-Public Use
  Company Number: A0754038A

PATIENT
  Age: 50 Year
  Sex: Female

DRUGS (1)
  1. NICORETTE [Suspect]
     Dates: start: 20081023, end: 20081025

REACTIONS (4)
  - BURNING SENSATION [None]
  - DRY MOUTH [None]
  - GINGIVAL PAIN [None]
  - GLOSSODYNIA [None]
